FAERS Safety Report 8152265-0 (Version None)
Quarter: 2012Q1

REPORT INFORMATION
  Report Type: 
  Country: None (occurrence: None)
  Receive Date: 20120221
  Receipt Date: 20120213
  Transmission Date: 20120608
  Serious: Yes (Hospitalization)
  Sender: FDA-Public Use
  Company Number: US-BAYER-2011-040107

PATIENT
  Age: 37 Year
  Sex: Female
  Weight: 68.934 kg

DRUGS (6)
  1. YAZ [Suspect]
     Dosage: UNK
     Dates: start: 20080407, end: 20090511
  2. PEPCID [Concomitant]
     Indication: GASTROOESOPHAGEAL REFLUX DISEASE
     Dosage: 20 MG, BID
  3. ACETAMINOPHEN [Concomitant]
     Indication: HEADACHE
     Dosage: 1 TABLET, QD
     Route: 048
  4. PROTONIX [Concomitant]
     Indication: GASTROOESOPHAGEAL REFLUX DISEASE
     Dosage: 40 MG, QD
     Route: 048
     Dates: start: 20080101, end: 20090101
  5. DEPO-PROVERA [Concomitant]
     Dosage: UNK
     Dates: start: 20090605
  6. VICODIN [Concomitant]
     Dosage: 1/2 TABLET
     Dates: start: 20090510

REACTIONS (11)
  - HEADACHE [None]
  - HEMIANOPIA HOMONYMOUS [None]
  - EMOTIONAL DISTRESS [None]
  - ANXIETY [None]
  - GENERAL PHYSICAL HEALTH DETERIORATION [None]
  - VOMITING [None]
  - CEREBRAL INFARCTION [None]
  - VISUAL ACUITY REDUCED [None]
  - INJURY [None]
  - PAIN [None]
  - NAUSEA [None]
